FAERS Safety Report 23611979 (Version 2)
Quarter: 2024Q1

REPORT INFORMATION
  Report Type: Spontaneous
  Country: US (occurrence: US)
  Receive Date: 20240308
  Receipt Date: 20240327
  Transmission Date: 20240410
  Serious: Yes (Death, Other)
  Sender: FDA-Public Use
  Company Number: US-PARI RESPIRATORY EQUIPMENT, INC.-2024PAR00017

PATIENT
  Age: 11 Year
  Sex: Male
  Weight: 23.7 kg

DRUGS (5)
  1. KITABIS PAK [Suspect]
     Active Substance: TOBRAMYCIN
     Indication: Pseudomonas infection
     Dosage: 300 MG VIA NEBULIZER BID (2X/DAY)
     Dates: start: 20220822, end: 20231129
  2. KITABIS PAK [Suspect]
     Active Substance: TOBRAMYCIN
     Indication: Pneumonia
  3. FENTANYL [Concomitant]
     Active Substance: FENTANYL\FENTANYL CITRATE
  4. IMIDAZOLE ANTIFUNGALS [Concomitant]
  5. DEXTROSE MONOHYDRATE USP POWDER [Concomitant]

REACTIONS (8)
  - Death [Fatal]
  - Chronic respiratory failure [Unknown]
  - Epilepsy [Unknown]
  - Urinary retention [Unknown]
  - Neurogenic bladder [Unknown]
  - Anterior chamber cleavage syndrome [Unknown]
  - Dysphagia [Unknown]
  - Off label use [Recovered/Resolved]

NARRATIVE: CASE EVENT DATE: 20220822
